FAERS Safety Report 4386414-7 (Version None)
Quarter: 2004Q2

REPORT INFORMATION
  Report Type: 
  Country: None (occurrence: None)
  Receive Date: 20040623
  Receipt Date: 20040610
  Transmission Date: 20050107
  Serious: Yes (Death)
  Sender: FDA-Public Use
  Company Number: 430004M04DEU

PATIENT
  Age: 49 Year
  Sex: Female

DRUGS (4)
  1. NOVANTRONE [Suspect]
     Indication: MULTIPLE SCLEROSIS
     Dosage: 20 MG,
     Dates: start: 20040422, end: 20040425
  2. METOPROLOL SUCCINATE [Concomitant]
  3. METHIMAZOLE [Concomitant]
  4. ONDANSETRON HCL [Concomitant]

REACTIONS (2)
  - CONDITION AGGRAVATED [None]
  - MULTIPLE SCLEROSIS [None]
